FAERS Safety Report 7752680-0 (Version None)
Quarter: 2011Q3

REPORT INFORMATION
  Report Type: 
  Country: None (occurrence: None)
  Receive Date: 20110915
  Receipt Date: 20110912
  Transmission Date: 20111222
  Serious: Yes (Other)
  Sender: FDA-Public Use
  Company Number: CA-PFIZER INC-2011214018

PATIENT
  Age: 60 Year
  Sex: Female

DRUGS (10)
  1. SPIRONOLACTONE [Concomitant]
     Indication: OEDEMA
  2. NASONEX [Concomitant]
     Indication: RESPIRATORY DISORDER
     Dosage: 2 NASAL SPRAYS WHEN NEEDED
     Route: 055
  3. SPIRONOLACTONE [Concomitant]
     Indication: HYPERTENSION
     Dosage: 25 MG, DAILY
  4. SYMBICORT [Concomitant]
     Indication: ASTHMA
     Dosage: 2 PUFFS 2X/DAY
     Route: 055
  5. CITALOPRAM [Concomitant]
     Indication: DEPRESSION
     Dosage: 20 MG, DAILY
     Route: 048
     Dates: start: 20100101
  6. VENTOLIN HFA [Concomitant]
     Indication: ASTHMA
     Dosage: 2 PUFFS WHEN NEEDED
     Route: 055
  7. CORTISONE [Concomitant]
     Indication: INFLAMMATION
     Dosage: UNK
  8. XALATAN [Suspect]
     Indication: GLAUCOMA
     Dosage: ONE DROP IN BOTH EYES ONCE A DAY
     Route: 047
  9. AVAPRO [Concomitant]
     Indication: HYPERTENSION
     Dosage: 75 MG, DAILY
  10. LIPITOR [Concomitant]
     Indication: BLOOD CHOLESTEROL INCREASED
     Dosage: 20 MG, DAILY

REACTIONS (1)
  - EYE DISORDER [None]
